FAERS Safety Report 5457080-4 (Version None)
Quarter: 2007Q3

REPORT INFORMATION
  Report Type: 
  Country: None (occurrence: None)
  Receive Date: 20070918
  Receipt Date: 20061222
  Transmission Date: 20080115
  Serious: No
  Sender: FDA-Public Use
  Company Number: US-ASTRAZENECA-2006UW28446

PATIENT
  Age: 61 Year
  Sex: Female

DRUGS (4)
  1. SEROQUEL [Suspect]
     Indication: BIPOLAR DISORDER
     Route: 048
     Dates: start: 20061201
  2. EFFEXOR [Concomitant]
  3. MAXZIDE [Concomitant]
  4. DETROL LA [Concomitant]

REACTIONS (1)
  - MUSCULOSKELETAL STIFFNESS [None]
